FAERS Safety Report 11370977 (Version 1)
Quarter: 2015Q3

REPORT INFORMATION
  Report Type: Report from Study
  Country: US (occurrence: US)
  Receive Date: 20150812
  Receipt Date: 20150812
  Transmission Date: 20151125
  Serious: No
  Sender: FDA-Public Use
  Company Number: PHHY2014US134495

PATIENT
  Age: 31 Year
  Sex: Female

DRUGS (1)
  1. GILENYA [Suspect]
     Active Substance: FINGOLIMOD HYDROCHLORIDE
     Indication: MULTIPLE SCLEROSIS
     Route: 048

REACTIONS (8)
  - Sinus rhythm [Recovered/Resolved]
  - Sensory loss [Unknown]
  - Arthralgia [Unknown]
  - Atrioventricular block first degree [Recovered/Resolved]
  - Musculoskeletal stiffness [Recovered/Resolved]
  - Melanocytic naevus [Recovered/Resolved]
  - Lymphocyte count decreased [Unknown]
  - Musculoskeletal stiffness [Unknown]

NARRATIVE: CASE EVENT DATE: 20140210
